FAERS Safety Report 18388573 (Version 1)
Quarter: 2020Q4

REPORT INFORMATION
  Report Type: Spontaneous
  Country: IN (occurrence: IN)
  Receive Date: 20201015
  Receipt Date: 20201015
  Transmission Date: 20210114
  Serious: Yes (Death, Other)
  Sender: FDA-Public Use
  Company Number: IN-BAUSCH-BL-2020-028811

PATIENT
  Age: 34 Year
  Sex: Male

DRUGS (3)
  1. ALCOHOL. [Interacting]
     Active Substance: ALCOHOL
     Indication: PRODUCT USED FOR UNKNOWN INDICATION
     Route: 065
  2. PAROXETINE. [Interacting]
     Active Substance: PAROXETINE
     Indication: PRODUCT USED FOR UNKNOWN INDICATION
     Route: 065
  3. DIAZEPAM. [Suspect]
     Active Substance: DIAZEPAM
     Indication: PRODUCT USED FOR UNKNOWN INDICATION
     Route: 065

REACTIONS (4)
  - Arterial injury [Fatal]
  - Drug interaction [Unknown]
  - Fall [Fatal]
  - Head injury [Fatal]
